FAERS Safety Report 6846593-6 (Version None)
Quarter: 2010Q3

REPORT INFORMATION
  Report Type: 
  Country: None (occurrence: None)
  Receive Date: 20100712
  Receipt Date: 20100701
  Transmission Date: 20110219
  Serious: Yes (Other)
  Sender: FDA-Public Use
  Company Number: 2010US002625

PATIENT
  Age: 14 Year
  Sex: Male

DRUGS (9)
  1. MYCAMINE [Suspect]
     Indication: PERITONITIS BACTERIAL
     Dosage: 3.5 MG/KG, UID/QD, IV NOS
     Route: 042
  2. PROGRAF [Suspect]
     Indication: IMMUNOSUPPRESSION
     Dosage: 0.06 MG/KG, BID, IV NOS
     Route: 042
  3. CYCLOPHOSPHAMIDE [Suspect]
     Indication: SYSTEMIC LUPUS ERYTHEMATOSUS
     Dosage: 750 MG/M2, MONTHLY
  4. METHYLPREDNISOLONE [Suspect]
     Indication: SYSTEMIC LUPUS ERYTHEMATOSUS
     Dosage: 30 MG/KG, WEEKLY
  5. PIPERACILLIN SODIUM W/TRAZOBACTAM (PIPERACILLIN SODIUM, TAZOBACTAM) [Concomitant]
  6. GENTAMYCIN (GENTAMYCIN) [Concomitant]
  7. VANCOMYCIN [Concomitant]
  8. PREDNISONE TAB [Concomitant]
  9. HYDROXYCHLOROQUINE SULFATE [Concomitant]

REACTIONS (9)
  - ABDOMINAL PAIN [None]
  - ATELECTASIS [None]
  - HAEMATEMESIS [None]
  - HAEMORRHAGE [None]
  - HISTIOCYTOSIS HAEMATOPHAGIC [None]
  - HYPERTENSION [None]
  - MUCORMYCOSIS [None]
  - PULMONARY HAEMORRHAGE [None]
  - SYSTEMIC LUPUS ERYTHEMATOSUS [None]
